FAERS Safety Report 5243438-5 (Version None)
Quarter: 2007Q1

REPORT INFORMATION
  Report Type: 
  Country: None (occurrence: None)
  Receive Date: 20070214
  Receipt Date: 20070129
  Transmission Date: 20070707
  Serious: Yes (Other)
  Sender: FDA-Public Use
  Company Number: 100#01#2006-02829

PATIENT
  Age: 31 Year
  Sex: Female

DRUGS (5)
  1. AZITHROMYCIN [Suspect]
     Indication: BRONCHITIS
     Dosage: 500 MG
     Route: 042
     Dates: start: 20061003, end: 20061003
  2. EUPHILLINUM (AMINOPHYLLINE) (AMINOPHYLLINE) [Concomitant]
  3. BERODUAL (DUOVENT) (FENOTEROL, IPRATROPIUM BROMIDE) [Concomitant]
  4. LASOLVAN (AMBROXOL HYDROCHLORIDE) (AMBROXOL HYDROCHLORIDE) [Concomitant]
  5. DEXAMETHASONE [Concomitant]

REACTIONS (5)
  - ASTHENIA [None]
  - DIZZINESS [None]
  - HYPERHIDROSIS [None]
  - HYPOTENSION [None]
  - TACHYCARDIA [None]
